FAERS Safety Report 4951089-2 (Version None)
Quarter: 2006Q1

REPORT INFORMATION
  Report Type: 
  Country: None (occurrence: None)
  Receive Date: 20060130
  Receipt Date: 20050421
  Transmission Date: 20060701
  Serious: Yes (Other)
  Sender: FDA-Public Use
  Company Number: 141924USA

PATIENT
  Sex: Female
  Weight: 68.0396 kg

DRUGS (5)
  1. COPAXONE [Suspect]
     Indication: MULTIPLE SCLEROSIS
     Dates: start: 20050201, end: 20050401
  2. COPAXONE [Suspect]
     Indication: MULTIPLE SCLEROSIS
     Dates: start: 20050501
  3. AMANTADINE HCL [Concomitant]
  4. LEVOTHROID [Concomitant]
  5. LEVLEN 28 [Concomitant]

REACTIONS (4)
  - CHEST DISCOMFORT [None]
  - CYANOSIS [None]
  - DYSPNOEA [None]
  - SYNCOPE [None]
